FAERS Safety Report 5595833-2 (Version None)
Quarter: 2008Q1

REPORT INFORMATION
  Report Type: 
  Country: None (occurrence: None)
  Receive Date: 20080118
  Receipt Date: 20080107
  Transmission Date: 20080703
  Serious: Yes (Hospitalization)
  Sender: FDA-Public Use
  Company Number: FR-JNJFOC-20080100869

PATIENT
  Age: 80 Year
  Sex: Female

DRUGS (3)
  1. TAVANIC [Suspect]
     Indication: BRONCHITIS
     Route: 048
  2. EFFERALGAN [Concomitant]
     Indication: BRONCHITIS
     Route: 048
  3. PNEUMOREL [Concomitant]
     Indication: BRONCHITIS
     Route: 048

REACTIONS (1)
  - DEAFNESS BILATERAL [None]
